FAERS Safety Report 4485072-0 (Version None)
Quarter: 2004Q4

REPORT INFORMATION
  Report Type: 
  Country: None (occurrence: None)
  Receive Date: 20040921
  Receipt Date: 20031002
  Transmission Date: 20050328
  Serious: Yes (Death, Hospitalization)
  Sender: FDA-Public Use
  Company Number: 163-20785-03030047(1)

PATIENT
  Age: 70 Year
  Sex: Female

DRUGS (10)
  1. THALOMID [Suspect]
     Indication: MULTIPLE MYELOMA
     Dosage: 100 MG, DAILY, ORAL
     Route: 048
     Dates: start: 20010207, end: 20020930
  2. DEXAMETHASONE [Suspect]
     Indication: MULTIPLE MYELOMA
     Dosage: 40 MG, DAILY, ORAL
     Route: 048
     Dates: start: 20020408, end: 20020411
  3. DEXAMETHASONE [Suspect]
     Indication: MULTIPLE MYELOMA
     Dosage: 40 MG, DAILY, ORAL
     Route: 048
     Dates: start: 20021124, end: 20021127
  4. DEXAMETHASONE [Suspect]
     Indication: MULTIPLE MYELOMA
     Dosage: 40 MG, DAILY, ORAL
     Route: 048
     Dates: start: 20021202, end: 20021205
  5. DEXAMETHASONE [Suspect]
     Indication: MULTIPLE MYELOMA
     Dosage: 40 MG, DAILY, ORAL
     Route: 048
     Dates: start: 20021210, end: 20021213
  6. DEXAMETHASONE [Suspect]
     Indication: MULTIPLE MYELOMA
     Dosage: 40 MG, DAILY, ORAL
     Route: 048
     Dates: start: 20020801
  7. CYTOXAN [Suspect]
     Indication: MULTIPLE MYELOMA
     Dosage: 500 MG, DAILY, INTRAVENOUS
     Route: 042
     Dates: start: 20020408, end: 20020411
  8. ETOPOSIDE [Suspect]
     Indication: MULTIPLE MYELOMA
     Dosage: 50 MG, DAILY, INTRAVENOUS
     Route: 042
     Dates: start: 20020408, end: 20020411
  9. CISPLATIN [Suspect]
     Indication: MULTIPLE MYELOMA
     Dosage: 25 MG, DAILY, INTRAVENOUS
     Route: 042
     Dates: start: 20020408, end: 20020411
  10. INTERFERON (INTERFERON) [Concomitant]

REACTIONS (3)
  - DEATH [None]
  - DISEASE PROGRESSION [None]
  - STAPHYLOCOCCAL INFECTION [None]
